FAERS Safety Report 8971184 (Version 1)
Quarter: 2012Q4

REPORT INFORMATION
  Report Type: 
  Country: CA (occurrence: CA)
  Receive Date: 20121217
  Receipt Date: 20121217
  Transmission Date: 20130627
  Serious: Yes (Death, Hospitalization)
  Sender: FDA-Public Use
  Company Number: CA-GLAXOSMITHKLINE-A1003948A

PATIENT
  Age: 59 None
  Sex: Female

DRUGS (6)
  1. TYKERB [Suspect]
     Indication: BREAST CANCER METASTATIC
     Dosage: 1250MG Per day
     Route: 048
     Dates: start: 201201
  2. SYNTHROID [Concomitant]
  3. EFFEXOR [Concomitant]
  4. DEXAMETHASONE [Concomitant]
  5. LORAZEPAM [Concomitant]
  6. XELODA [Concomitant]

REACTIONS (3)
  - Respiratory tract infection viral [Unknown]
  - Dyspnoea [Unknown]
  - Death [Fatal]
